FAERS Safety Report 21515311 (Version 1)
Quarter: 2022Q4

REPORT INFORMATION
  Report Type: Spontaneous
  Country: CN (occurrence: CN)
  Receive Date: 20221027
  Receipt Date: 20221027
  Transmission Date: 20230113
  Serious: Yes (Other)
  Sender: FDA-Public Use
  Company Number: CN-PFIZER INC-PV202200090027

PATIENT
  Age: 10 Year
  Sex: Male
  Weight: 24.5 kg

DRUGS (4)
  1. MEDROL [Suspect]
     Active Substance: METHYLPREDNISOLONE
     Indication: Bone marrow transplant
     Dosage: 40 MG, 1X/DAY
     Route: 048
     Dates: start: 20220704, end: 20220705
  2. MEDROL [Suspect]
     Active Substance: METHYLPREDNISOLONE
     Indication: Bone marrow transplant rejection
     Dosage: 24 MG, 2X/DAY (Q12H)
     Route: 048
     Dates: start: 20220706, end: 20220706
  3. MEDROL [Suspect]
     Active Substance: METHYLPREDNISOLONE
     Dosage: 24 MG, 1X/DAY
     Route: 048
     Dates: start: 20220707, end: 20220707
  4. MEDROL [Suspect]
     Active Substance: METHYLPREDNISOLONE
     Dosage: 2 MG, 1X/DAY
     Route: 048
     Dates: start: 20220708, end: 20220725

REACTIONS (3)
  - Ocular hypertension [Recovered/Resolved]
  - Intraocular pressure increased [Unknown]
  - Off label use [Unknown]

NARRATIVE: CASE EVENT DATE: 20220704
